FAERS Safety Report 8012340 (Version 7)
Quarter: 2012Q4

REPORT INFORMATION
  Report Type: 
  Country: US (occurrence: US)
  Receive Date: 20110628
  Receipt Date: 20120913
  Transmission Date: 20130627
  Serious: Yes (Hospitalization, Other)
  Sender: FDA-Public Use
  Company Number: US-PFIZER INC-2011140701

PATIENT
  Age: 58 Year
  Sex: Female

DRUGS (8)
  1. PRISTIQ [Suspect]
     Indication: DEPRESSION
     Dosage: 50 mg, 1x/day, every morning
     Route: 048
     Dates: start: 2008
  2. PRISTIQ [Suspect]
     Dosage: 50 mg, UNK
     Route: 048
     Dates: start: 201012, end: 201012
  3. EFFEXOR [Suspect]
     Dosage: UNK
  4. VENLAFAXINE HYDROCHLORIDE [Suspect]
     Dosage: UNK
  5. XANAX [Concomitant]
     Dosage: 1 mg, 2x/day
  6. XANAX [Concomitant]
     Dosage: 2 mg, UNK
  7. ADDERALL [Concomitant]
     Dosage: 15; 2x/day
  8. ADDERALL [Concomitant]
     Dosage: 30 mg, UNK

REACTIONS (8)
  - Rheumatoid arthritis [Unknown]
  - Peroneal nerve palsy [Unknown]
  - Spinal column stenosis [Unknown]
  - Fall [Unknown]
  - Neuropathy peripheral [Unknown]
  - Diarrhoea [Unknown]
  - Nausea [Unknown]
  - Feeling abnormal [Recovered/Resolved]
